FAERS Safety Report 7146461-9 (Version None)
Quarter: 2010Q4

REPORT INFORMATION
  Report Type: 
  Country: None (occurrence: None)
  Receive Date: 20101208
  Receipt Date: 20101130
  Transmission Date: 20110411
  Serious: Yes (Hospitalization, Other)
  Sender: FDA-Public Use
  Company Number: PHHY2010US75125

PATIENT
  Sex: Male

DRUGS (1)
  1. EXJADE [Suspect]
     Indication: IRON OVERLOAD
     Dosage: 1250MG DAILY
     Dates: start: 20100916

REACTIONS (4)
  - DYSPHAGIA [None]
  - OESOPHAGITIS [None]
  - SERUM FERRITIN INCREASED [None]
  - WEIGHT DECREASED [None]
